FAERS Safety Report 5613117-0 (Version None)
Quarter: 2008Q1

REPORT INFORMATION
  Report Type: 
  Country: None (occurrence: None)
  Receive Date: 20080129
  Receipt Date: 20080115
  Transmission Date: 20080703
  Serious: Yes (Other)
  Sender: FDA-Public Use
  Company Number: US022239

PATIENT
  Age: 35 Year
  Sex: Male
  Weight: 122.4712 kg

DRUGS (5)
  1. PROVIGIL [Suspect]
     Dosage: ORAL
     Route: 048
  2. PAROXETINE HCL [Suspect]
     Indication: DEPRESSION
     Dosage: ORAL
     Route: 048
  3. CONCERTA [Suspect]
     Dosage: ORAL
     Route: 048
  4. DOXEPIN HCL [Suspect]
     Indication: DEPRESSION
     Dosage: ORAL
     Route: 048
  5. FINASTERIDE [Suspect]
     Dosage: ORAL
     Route: 048

REACTIONS (6)
  - AGGRESSION [None]
  - CHILD ABUSE [None]
  - EMOTIONAL DISORDER [None]
  - HOMICIDE [None]
  - SCREAMING [None]
  - TREMOR [None]
